FAERS Safety Report 9491161 (Version 2)
Quarter: 2014Q2

REPORT INFORMATION
  Report Type: Report from Study
  Country: MX (occurrence: MX)
  Receive Date: 20130830
  Receipt Date: 20140512
  Transmission Date: 20141212
  Serious: Yes (Life-Threatening, Hospitalization, Other)
  Sender: FDA-Public Use
  Company Number: PHHY2013MX094594

PATIENT
  Age: 88 Year
  Sex: Female

DRUGS (5)
  1. CO-DIOVAN [Suspect]
     Indication: HYPERTENSION
     Dosage: 1 DF, (160/12.5 MG) DAILY
     Route: 048
  2. ELATEC [Concomitant]
     Indication: CARDIOVASCULAR DISORDER
     Dosage: 1 TABLET, DAILY
     Dates: start: 2012
  3. DIABION [Concomitant]
     Indication: VITAMIN SUPPLEMENTATION
     Dosage: 1 DF, UNK
     Dates: start: 2011
  4. JALRA [Concomitant]
     Indication: BLOOD GLUCOSE INCREASED
     Dosage: 2 DF, DAILY
     Dates: start: 2012, end: 201404
  5. METFORMIN [Concomitant]
     Indication: DIABETES MELLITUS
     Dosage: 1 TABLET (850 MG), DAILY
     Dates: end: 20140501

REACTIONS (7)
  - Diabetes mellitus [Not Recovered/Not Resolved]
  - Blood glucose increased [Not Recovered/Not Resolved]
  - Blindness [Not Recovered/Not Resolved]
  - Abdominal discomfort [Recovered/Resolved]
  - Dehydration [Recovered/Resolved]
  - Oedema peripheral [Recovered/Resolved]
  - Vomiting [Recovered/Resolved]
